FAERS Safety Report 14576641 (Version 1)
Quarter: 2018Q1

REPORT INFORMATION
  Report Type: Spontaneous
  Country: US (occurrence: US)
  Receive Date: 20180224
  Receipt Date: 20180224
  Transmission Date: 20180509
  Serious: Yes (Hospitalization)
  Sender: FDA-Public Use
  Company Number: None

PATIENT
  Age: 63 Year
  Sex: Male
  Weight: 84.8 kg

DRUGS (2)
  1. SULFAMETHOXAZOLE/TRIMETHOPRIM [Suspect]
     Active Substance: SULFAMETHOXAZOLE\TRIMETHOPRIM
     Indication: OSTEOMYELITIS
     Dosage: 800/160 MG BID PO
     Route: 048
     Dates: start: 20171103, end: 20171114
  2. VANCOMYCIN [Suspect]
     Active Substance: VANCOMYCIN
     Indication: OSTEOMYELITIS
     Route: 042
     Dates: start: 20171108, end: 20171217

REACTIONS (6)
  - Dysphagia [None]
  - Fatigue [None]
  - Leukopenia [None]
  - Malaise [None]
  - Neutropenia [None]
  - Salivary hypersecretion [None]

NARRATIVE: CASE EVENT DATE: 20171111
